FAERS Safety Report 8548570-6 (Version None)
Quarter: 2012Q3

REPORT INFORMATION
  Report Type: 
  Country: None (occurrence: None)
  Receive Date: 20120730
  Receipt Date: 20120723
  Transmission Date: 20120928
  Serious: Yes (Other)
  Sender: FDA-Public Use
  Company Number: US-JNJFOC-20120408279

PATIENT
  Sex: Female
  Weight: 81.65 kg

DRUGS (24)
  1. AMITRIPTYLINE HYDROCHLORIDE [Concomitant]
     Indication: SLEEP DISORDER
     Dosage: 100 MG TABLET/ 25 MG ONCE A DAY
     Route: 048
     Dates: start: 20110101
  2. ASCORBIC ACID [Concomitant]
     Indication: MEDICAL DIET
     Route: 048
     Dates: start: 20110101
  3. NUCYNTA ER [Suspect]
     Route: 048
     Dates: start: 20111201
  4. NUCYNTA ER [Suspect]
     Route: 048
  5. VIMOVO [Concomitant]
     Indication: SWELLING
     Dosage: 500/20MG TWICE A DAY
     Route: 048
     Dates: start: 20110101
  6. METOPROLOL TARTRATE [Concomitant]
     Indication: BLOOD PRESSURE
     Route: 065
     Dates: start: 20120301
  7. NUCYNTA ER [Suspect]
     Indication: BACK PAIN
     Dosage: TWICE DAILY
     Route: 048
  8. NUCYNTA ER [Suspect]
     Dosage: 200 MG IN 24 HOURS
     Route: 048
     Dates: start: 20120401, end: 20120514
  9. NUCYNTA ER [Suspect]
     Dosage: AS NEEDED
     Route: 048
     Dates: start: 20111001, end: 20120411
  10. NUCYNTA ER [Suspect]
     Dosage: AS NEEDED
     Route: 048
     Dates: start: 20120411
  11. AMITRIPTYLINE HYDROCHLORIDE [Concomitant]
     Indication: PAIN
     Dosage: 100 MG TABLET/ 25 MG ONCE A DAY
     Route: 048
     Dates: start: 20110101
  12. VIMOVO [Concomitant]
     Indication: GASTRIC DISORDER
     Dosage: 20/500 MG TABLET ONCE A DAY
     Route: 048
     Dates: start: 20110101
  13. LOESTRIN 1.5/30 [Concomitant]
     Indication: SWELLING
     Route: 048
     Dates: start: 20110101
  14. NUCYNTA ER [Suspect]
     Indication: BACK PAIN
     Dosage: PATIENT WAS TAKING EVERY 4-6 HOURLY
     Route: 048
  15. NUCYNTA ER [Suspect]
     Dosage: 150 MG 2 IN 24 HOURS
     Route: 048
     Dates: start: 20120514
  16. VIMOVO [Concomitant]
     Dosage: 20/500 MG TABLET ONCE A DAY
     Route: 048
     Dates: start: 20110101
  17. VITAMIN D [Concomitant]
     Indication: MEDICAL DIET
     Route: 048
     Dates: start: 20110101
  18. MAGNESIUM SULFATE [Concomitant]
     Route: 065
  19. NUCYNTA ER [Suspect]
     Route: 048
     Dates: start: 20120101, end: 20120322
  20. NUCYNTA ER [Suspect]
     Dosage: ONCE A DAY AT NIGHT
     Route: 048
     Dates: start: 20120401
  21. NUCYNTA ER [Suspect]
     Dosage: EVERY 4 HOURS
     Route: 048
     Dates: start: 20120401
  22. NUCYNTA ER [Suspect]
     Route: 048
     Dates: start: 20120418
  23. NUCYNTA ER [Suspect]
     Dosage: 200 MG TWICE A DAY
     Route: 048
     Dates: start: 20120322, end: 20120401
  24. VIMOVO [Concomitant]
     Dosage: 500/20MG TWICE A DAY
     Route: 048
     Dates: start: 20110101

REACTIONS (14)
  - DRUG ADMINISTRATION ERROR [None]
  - POOR QUALITY SLEEP [None]
  - PALPITATIONS [None]
  - HEART RATE INCREASED [None]
  - CHEST PAIN [None]
  - DIZZINESS [None]
  - TREMOR [None]
  - HYPERTENSION [None]
  - GAIT DISTURBANCE [None]
  - INADEQUATE ANALGESIA [None]
  - CARDIAC FLUTTER [None]
  - DRUG INEFFECTIVE [None]
  - FEELING HOT [None]
  - ADVERSE EVENT [None]
